FAERS Safety Report 16400595 (Version 2)
Quarter: 2019Q2

REPORT INFORMATION
  Report Type: Spontaneous
  Country: IT (occurrence: IT)
  Receive Date: 20190606
  Receipt Date: 20190621
  Transmission Date: 20190711
  Serious: Yes (Other)
  Sender: FDA-Public Use
  Company Number: IT-JNJFOC-20190543372

PATIENT
  Age: 57 Year
  Sex: Female

DRUGS (2)
  1. HALOPERIDOL. [Suspect]
     Active Substance: HALOPERIDOL
     Indication: PSYCHOTIC DISORDER
     Route: 065
  2. OLANZAPINE. [Suspect]
     Active Substance: OLANZAPINE
     Indication: PSYCHOTIC DISORDER
     Route: 065

REACTIONS (5)
  - Pulmonary embolism [Recovering/Resolving]
  - Portal vein thrombosis [Recovering/Resolving]
  - Pneumonia aspiration [Recovering/Resolving]
  - Mesenteric vein thrombosis [Recovering/Resolving]
  - Intestinal ischaemia [Recovering/Resolving]
